FAERS Safety Report 7269345-4 (Version None)
Quarter: 2011Q1

REPORT INFORMATION
  Report Type: 
  Country: None (occurrence: None)
  Receive Date: 20110125
  Receipt Date: 20110114
  Transmission Date: 20110831
  Serious: Yes (Hospitalization, Other)
  Sender: FDA-Public Use
  Company Number: JHP201000393

PATIENT
  Age: 3 Day
  Sex: Female
  Weight: 3.9 kg

DRUGS (3)
  1. HARTMAN'S SOLUTION (CALCIUM CHLORIDE DIHYDRATE, POTASSIUM CHLORIDE, SO [Concomitant]
  2. ANESTHETICS [Concomitant]
  3. PITOCIN [Suspect]
     Indication: INDUCED LABOUR
     Dosage: 33 MU/MIN(400 ML/HR) DILUTED IN 5% GLUCOSE, TOTAL VOLUME 2000ML, TRANSPLACENTAL
     Route: 064

REACTIONS (12)
  - JAUNDICE NEONATAL [None]
  - CRYING [None]
  - CONVULSION NEONATAL [None]
  - INAPPROPRIATE ANTIDIURETIC HORMONE SECRETION [None]
  - OLIGURIA [None]
  - SOMNOLENCE NEONATAL [None]
  - MATERNAL DRUGS AFFECTING FOETUS [None]
  - IRRITABILITY [None]
  - VOMITING NEONATAL [None]
  - FLUID RETENTION [None]
  - CAESAREAN SECTION [None]
  - NAUSEA [None]
